FAERS Safety Report 7927194-5 (Version None)
Quarter: 2011Q4

REPORT INFORMATION
  Report Type: 
  Country: None (occurrence: None)
  Receive Date: 20111118
  Receipt Date: 20111115
  Transmission Date: 20120403
  Serious: Yes (Death)
  Sender: FDA-Public Use
  Company Number: JP-BAYER-2011-086702

PATIENT
  Age: 78 Year
  Sex: Female

DRUGS (2)
  1. NEXAVAR [Suspect]
     Indication: RENAL CELL CARCINOMA
     Dosage: 200 MG, BID
     Route: 048
     Dates: start: 20110823
  2. NEXAVAR [Suspect]
     Dosage: UNK
     Route: 048
     Dates: start: 20110927, end: 20111027

REACTIONS (5)
  - PLATELET COUNT DECREASED [None]
  - DECREASED APPETITE [None]
  - DEATH [None]
  - BLOOD THYROID STIMULATING HORMONE INCREASED [None]
  - RASH [None]
